FAERS Safety Report 10306259 (Version 1)
Quarter: 2014Q3

REPORT INFORMATION
  Report Type: Spontaneous
  Country: FR (occurrence: FR)
  Receive Date: 20140715
  Receipt Date: 20140715
  Transmission Date: 20150326
  Serious: Yes (Hospitalization)
  Sender: FDA-Public Use
  Company Number: FR-ASTRAZENECA-2014SE49719

PATIENT
  Age: 1875 Day
  Sex: Female
  Weight: 21 kg

DRUGS (2)
  1. INEXIUM [Suspect]
     Active Substance: ESOMEPRAZOLE
     Route: 048
     Dates: start: 201210, end: 20140204
  2. BETHANECHOL [Suspect]
     Active Substance: BETHANECHOL
     Route: 048
     Dates: start: 201210, end: 20140204

REACTIONS (5)
  - Convulsion [Unknown]
  - Fall [Unknown]
  - Epistaxis [Unknown]
  - Electroencephalogram abnormal [Recovered/Resolved]
  - Malaise [Recovered/Resolved]

NARRATIVE: CASE EVENT DATE: 20140204
